FAERS Safety Report 18027526 (Version 2)
Quarter: 2021Q2

REPORT INFORMATION
  Report Type: Spontaneous
  Country: US (occurrence: US)
  Receive Date: 20200716
  Receipt Date: 20210629
  Transmission Date: 20210717
  Serious: Yes (Hospitalization)
  Sender: FDA-Public Use
  Company Number: US-TEVA-2020-US-1799912

PATIENT
  Age: 78 Year
  Sex: Female

DRUGS (2)
  1. ALL?TRANS RETINOIC ACID [Suspect]
     Active Substance: TRETINOIN
     Indication: ACUTE PROMYELOCYTIC LEUKAEMIA
     Route: 065
  2. ARSENIC TRIOXIDE. [Suspect]
     Active Substance: ARSENIC TRIOXIDE
     Indication: ACUTE PROMYELOCYTIC LEUKAEMIA
     Route: 065

REACTIONS (8)
  - Differentiation syndrome [Recovered/Resolved]
  - Acute myocardial infarction [Recovered/Resolved]
  - Myocardial necrosis [Recovered/Resolved]
  - Pulmonary congestion [Recovered/Resolved]
  - Pericardial effusion [Recovered/Resolved]
  - Hypotension [Recovered/Resolved]
  - Pleural effusion [Recovered/Resolved]
  - Coronary artery disease [Recovered/Resolved]
